FAERS Safety Report 16295529 (Version 2)
Quarter: 2019Q4

REPORT INFORMATION
  Report Type: Spontaneous
  Country: US (occurrence: US)
  Receive Date: 20190509
  Receipt Date: 20191015
  Transmission Date: 20200122
  Serious: No
  Sender: FDA-Public Use
  Company Number: US-SA-2017SA254960

PATIENT
  Age: 47 Year
  Sex: Female

DRUGS (1)
  1. AUBAGIO [Suspect]
     Active Substance: TERIFLUNOMIDE
     Indication: MULTIPLE SCLEROSIS
     Dosage: 14 MG,QD
     Route: 048
     Dates: start: 20170809

REACTIONS (5)
  - Fall [Unknown]
  - Product dose omission [Unknown]
  - Dizziness [Unknown]
  - Memory impairment [Unknown]
  - Fatigue [Not Recovered/Not Resolved]

NARRATIVE: CASE EVENT DATE: 20190927
